FAERS Safety Report 4836204-3 (Version None)
Quarter: 2005Q4

REPORT INFORMATION
  Report Type: 
  Country: None (occurrence: None)
  Receive Date: 20051118
  Receipt Date: 20051107
  Transmission Date: 20060501
  Serious: Yes (Hospitalization)
  Sender: FDA-Public Use
  Company Number: 2005-0008626

PATIENT
  Age: 29 Year
  Sex: Male

DRUGS (5)
  1. VIREAD [Suspect]
     Indication: HIV INFECTION
     Dosage: 300 MG, 1 IN 1 D, ORAL
     Route: 048
     Dates: start: 20040301
  2. REYATAZ [Suspect]
     Indication: HIV INFECTION
     Dosage: 300 MG, 1 IN 1 D, ORAL
     Route: 048
     Dates: start: 20040301
  3. EPIVIR [Suspect]
     Indication: HIV INFECTION
     Dates: start: 20040301
  4. NORVIR [Concomitant]
  5. NEO-MINOPHAGEN (GLYCYRRHIZIC ACID, AMMONIUM SALT) [Concomitant]

REACTIONS (2)
  - HEPATITIS B [None]
  - IMMUNE RECONSTITUTION SYNDROME [None]
